FAERS Safety Report 13661250 (Version 1)
Quarter: 2017Q2

REPORT INFORMATION
  Report Type: Report from Study
  Country: US (occurrence: US)
  Receive Date: 20170616
  Receipt Date: 20170616
  Transmission Date: 20170830
  Serious: No
  Sender: FDA-Public Use
  Company Number: US-US WORLDMEDS, LLC-USW201702-000275

PATIENT
  Age: 75 Year
  Sex: Female
  Weight: 58.96 kg

DRUGS (9)
  1. PROAIR HFA [Concomitant]
     Active Substance: ALBUTEROL SULFATE
  2. FAMOTIDINE. [Concomitant]
     Active Substance: FAMOTIDINE
  3. SINEMET [Concomitant]
     Active Substance: CARBIDOPA\LEVODOPA
     Route: 048
  4. SINEMET [Concomitant]
     Active Substance: CARBIDOPA\LEVODOPA
     Route: 048
  5. SIMVASTATIN. [Concomitant]
     Active Substance: SIMVASTATIN
     Route: 048
  6. MELATONIN [Concomitant]
     Active Substance: MELATONIN
     Route: 048
  7. APOKYN [Suspect]
     Active Substance: APOMORPHINE HYDROCHLORIDE
     Indication: PARKINSON^S DISEASE
     Route: 058
     Dates: start: 20170130, end: 20170206
  8. FAMIDINE [Concomitant]
     Route: 048
  9. VITAMIN B12 [Concomitant]
     Active Substance: CYANOCOBALAMIN
     Route: 048

REACTIONS (4)
  - Hallucination, visual [Unknown]
  - Cognitive disorder [Recovering/Resolving]
  - Urinary tract infection [Recovering/Resolving]
  - Confusional state [Recovering/Resolving]

NARRATIVE: CASE EVENT DATE: 20170206
